FAERS Safety Report 12402085 (Version 3)
Quarter: 2016Q2

REPORT INFORMATION
  Report Type: Spontaneous
  Country: CN (occurrence: CN)
  Receive Date: 20160525
  Receipt Date: 20160627
  Transmission Date: 20160815
  Serious: Yes (Other)
  Sender: FDA-Public Use
  Company Number: CN-009507513-1505CHN014960

PATIENT
  Age: 20 Year
  Sex: Male
  Weight: 65 kg

DRUGS (12)
  1. PYRIDOXINE [Concomitant]
     Active Substance: PYRIDOXINE
     Indication: FLUID REPLACEMENT
     Dosage: 100 MG, QD
     Route: 041
     Dates: start: 20150515, end: 20150517
  2. SODIUM CHLORIDE. [Concomitant]
     Active Substance: SODIUM CHLORIDE
     Dosage: 30.0 ML/CC, TID
     Route: 048
     Dates: start: 20150519, end: 20150519
  3. SODIUM CHLORIDE. [Concomitant]
     Active Substance: SODIUM CHLORIDE
     Indication: ELECTROLYTE SUBSTITUTION THERAPY
     Dosage: TOTAL DAILY DOSE: 30 ML/CC
     Route: 041
     Dates: start: 20150519, end: 20150519
  4. DEXAMETHASONE. [Concomitant]
     Active Substance: DEXAMETHASONE
     Indication: VOMITING
     Dosage: TOTAL DAILY DOSE: 10 MG, QD
     Route: 042
     Dates: start: 20150515, end: 20150517
  5. DOXORUBICIN [Concomitant]
     Active Substance: DOXORUBICIN
     Indication: CHEMOTHERAPY
     Dosage: 60 MG, D1, TREATMENT CYCLE 1/UNK, TREATMENT REGIMEN: CAP
     Route: 041
     Dates: start: 20150515, end: 20150515
  6. CISPLATIN. [Concomitant]
     Active Substance: CISPLATIN
     Indication: CHEMOTHERAPY
     Dosage: 40 MG, D1, TREATMENT CYCLE 1/UNK, TREATMENT REGIMEN: CAP
     Route: 041
     Dates: start: 20150515, end: 20150515
  7. DIPHENHYDRAMINE. [Concomitant]
     Active Substance: DIPHENHYDRAMINE
     Indication: VOMITING
     Dosage: TOTAL DAILY DOSE: 40 MG, QD
     Route: 030
     Dates: start: 20150515, end: 20150517
  8. CYCLOPHOSPHAMIDE. [Concomitant]
     Active Substance: CYCLOPHOSPHAMIDE
     Indication: CHEMOTHERAPY
     Dosage: 1.0 G, D1, TREATMENT CYCLE 1/UNK, TREATMENT REGIMEN: CAP
     Route: 041
     Dates: start: 20150515, end: 20150515
  9. BACLOFEN. [Concomitant]
     Active Substance: BACLOFEN
     Indication: HICCUPS
     Dosage: 10 MG, TID
     Route: 048
     Dates: start: 20150517, end: 20150517
  10. EMEND [Suspect]
     Active Substance: APREPITANT
     Indication: PROPHYLAXIS OF NAUSEA AND VOMITING
     Dosage: DAY1: 125 MG, ONCE
     Route: 048
     Dates: start: 20150515, end: 20150515
  11. EMEND [Suspect]
     Active Substance: APREPITANT
     Dosage: DAY 2 AND DAY 3: 80 MG, DAILY
     Route: 048
     Dates: start: 20150516, end: 20150517
  12. PALONOSETRON HYDROCHLORIDE. [Concomitant]
     Active Substance: PALONOSETRON HYDROCHLORIDE
     Indication: VOMITING
     Dosage: 0.25 MG, QD
     Route: 041
     Dates: start: 20150515, end: 20150515

REACTIONS (2)
  - Blood sodium decreased [Recovered/Resolved]
  - Respiratory tract infection [Recovered/Resolved]

NARRATIVE: CASE EVENT DATE: 20150519
